FAERS Safety Report 23738193 (Version 2)
Quarter: 2024Q2

REPORT INFORMATION
  Report Type: Spontaneous
  Country: US (occurrence: IL)
  Receive Date: 20240412
  Receipt Date: 20240601
  Transmission Date: 20240716
  Serious: Yes (Death)
  Sender: FDA-Public Use
  Company Number: US-ABBVIE-5715923

PATIENT

DRUGS (1)
  1. CREON [Suspect]
     Active Substance: PANCRELIPASE AMYLASE\PANCRELIPASE LIPASE\PANCRELIPASE PROTEASE
     Indication: Cystic fibrosis lung
     Dosage: UNKNOWN
     Route: 048

REACTIONS (4)
  - Starvation [Fatal]
  - Malnutrition [Fatal]
  - Off label use [Not Recovered/Not Resolved]
  - Malabsorption [Fatal]
